FAERS Safety Report 4645937-3 (Version None)
Quarter: 2005Q2

REPORT INFORMATION
  Report Type: 
  Country: None (occurrence: None)
  Receive Date: 20050422
  Receipt Date: 20050422
  Transmission Date: 20051028
  Serious: No
  Sender: FDA-Public Use
  Company Number: None

PATIENT
  Age: 59 Year
  Sex: Male

DRUGS (3)
  1. MEPERIDINE HCL [Suspect]
     Indication: ENDOSCOPY GASTROINTESTINAL
     Dosage: 50 MG; 2MG
  2. MEPERIDINE HCL [Suspect]
     Indication: SEDATION
     Dosage: 50 MG; 2MG
  3. MIDAZOLAM HCL [Suspect]

REACTIONS (6)
  - APNOEA [None]
  - BLOOD CREATININE INCREASED [None]
  - BLOOD PRESSURE INCREASED [None]
  - PNEUMONIA [None]
  - PROCEDURAL COMPLICATION [None]
  - PYREXIA [None]
